FAERS Safety Report 20735413 (Version 1)
Quarter: 2022Q2

REPORT INFORMATION
  Report Type: Spontaneous
  Country: US (occurrence: None)
  Receive Date: 20220421
  Receipt Date: 20220421
  Transmission Date: 20220721
  Serious: Yes (Other)
  Sender: FDA-Public Use
  Company Number: None

PATIENT
  Age: 41 Year
  Sex: Female
  Weight: 60.75 kg

DRUGS (12)
  1. RISANKIZUMAB-RZAA [Suspect]
     Active Substance: RISANKIZUMAB-RZAA
     Indication: Psoriatic arthropathy
     Dosage: OTHER FREQUENCY : INJECTION;?
     Route: 058
     Dates: start: 20220407
  2. OMEPRAZOLE [Concomitant]
     Active Substance: OMEPRAZOLE
  3. LEXAPRO [Concomitant]
     Active Substance: ESCITALOPRAM OXALATE
  4. KEPPRA [Concomitant]
     Active Substance: LEVETIRACETAM
  5. PROPRANOLOL [Concomitant]
     Active Substance: PROPRANOLOL HYDROCHLORIDE
  6. DOXEPIN [Concomitant]
     Active Substance: DOXEPIN
  7. PRAZOSIN [Concomitant]
     Active Substance: PRAZOSIN
  8. VITAMINS [Concomitant]
     Active Substance: VITAMINS
  9. BLACK COHOSH [Concomitant]
     Active Substance: BLACK COHOSH
  10. MAGNESIUM [Concomitant]
     Active Substance: MAGNESIUM
  11. CALCIUM [Concomitant]
     Active Substance: CALCIUM
  12. VITAMINS [Concomitant]
     Active Substance: VITAMINS

REACTIONS (7)
  - Oropharyngeal pain [None]
  - Laryngitis [None]
  - Rash [None]
  - Urticaria [None]
  - Pain [None]
  - Mobility decreased [None]
  - Feeling abnormal [None]

NARRATIVE: CASE EVENT DATE: 20220410
